FAERS Safety Report 5410645-8 (Version None)
Quarter: 2007Q3

REPORT INFORMATION
  Report Type: 
  Country: None (occurrence: None)
  Receive Date: 20070810
  Receipt Date: 20070504
  Transmission Date: 20080115
  Serious: No
  Sender: FDA-Public Use
  Company Number: A0649990A

PATIENT
  Age: 18 Year
  Sex: Female

DRUGS (4)
  1. PAXIL [Suspect]
     Dosage: 15MG PER DAY
     Route: 048
     Dates: start: 20070301
  2. AMBIEN [Concomitant]
  3. SEROQUEL [Concomitant]
  4. LORAZEPAM [Concomitant]

REACTIONS (1)
  - HYPOAESTHESIA [None]
